FAERS Safety Report 17409995 (Version 8)
Quarter: 2020Q4

REPORT INFORMATION
  Report Type: Spontaneous
  Country: IN (occurrence: IN)
  Receive Date: 20200212
  Receipt Date: 20201030
  Transmission Date: 20210113
  Serious: Yes (Death, Other)
  Sender: FDA-Public Use
  Company Number: IN-PFIZER INC-2019212261

PATIENT
  Age: 22 Year
  Sex: Male

DRUGS (1)
  1. SUTENT [Suspect]
     Active Substance: SUNITINIB MALATE
     Indication: METASTATIC RENAL CELL CARCINOMA
     Dosage: 50 MG, CYCLIC (ONCE A DAY D1-D14 FOR ONE WEEK)
     Route: 048
     Dates: start: 20170429

REACTIONS (10)
  - Neoplasm progression [Unknown]
  - Gait inability [Unknown]
  - Death [Fatal]
  - Pain in extremity [Unknown]
  - Blindness [Unknown]
  - Back pain [Unknown]
  - Pain [Not Recovered/Not Resolved]
  - Stress [Unknown]
  - Restlessness [Unknown]
  - Asthenia [Not Recovered/Not Resolved]

NARRATIVE: CASE EVENT DATE: 20200901
